FAERS Safety Report 7049437-5 (Version None)
Quarter: 2010Q4

REPORT INFORMATION
  Report Type: 
  Country: None (occurrence: None)
  Receive Date: 20101007
  Receipt Date: 20100922
  Transmission Date: 20110411
  Serious: Yes (Hospitalization, Other)
  Sender: FDA-Public Use
  Company Number: ACO_01749_2010

PATIENT
  Sex: Female
  Weight: 86 kg

DRUGS (9)
  1. AMPYRA [Suspect]
     Indication: MULTIPLE SCLEROSIS
     Dosage: 10 MG BID ORAL
     Route: 048
     Dates: start: 20100701, end: 20100810
  2. AMITRIPTYLINE HCL [Concomitant]
  3. AMANTADINE [Concomitant]
  4. TIZANIDINE HCL [Concomitant]
  5. VENLAFAXINE [Concomitant]
  6. BACLOFEN [Concomitant]
  7. AVONEX [Concomitant]
  8. VITAMIN D [Concomitant]
  9. EFFEXOR [Concomitant]

REACTIONS (16)
  - BLOOD CHLORIDE DECREASED [None]
  - BLOOD MAGNESIUM DECREASED [None]
  - BLOOD PRESSURE DIASTOLIC INCREASED [None]
  - BLOOD SODIUM DECREASED [None]
  - CONFUSIONAL STATE [None]
  - CONTUSION [None]
  - CONVULSION [None]
  - CONVULSIVE THRESHOLD LOWERED [None]
  - DISORIENTATION [None]
  - HAEMATOCRIT DECREASED [None]
  - HYPERREFLEXIA [None]
  - HYPERTONIA [None]
  - PERONEAL NERVE PALSY [None]
  - SENSORY DISTURBANCE [None]
  - SLOW RESPONSE TO STIMULI [None]
  - WHITE BLOOD CELL COUNT DECREASED [None]
